FAERS Safety Report 18043018 (Version 2)
Quarter: 2021Q1

REPORT INFORMATION
  Report Type: Other
  Country: DE (occurrence: DE)
  Receive Date: 20200720
  Receipt Date: 20210113
  Transmission Date: 20210419
  Serious: Yes (Hospitalization)
  Sender: FDA-Public Use
  Company Number: DE-ROCHE-2642051

PATIENT
  Age: 69 Year
  Sex: Female

DRUGS (12)
  1. PREDNISOLONE. [Concomitant]
     Active Substance: PREDNISOLONE
     Dates: start: 2014
  2. TOCILIZUMAB. [Suspect]
     Active Substance: TOCILIZUMAB
     Indication: RHEUMATOID ARTHRITIS
     Route: 058
     Dates: end: 20200218
  3. METHOTREXATE. [Suspect]
     Active Substance: METHOTREXATE
     Indication: RHEUMATOID ARTHRITIS
     Route: 065
  4. CELEBREX [Concomitant]
     Active Substance: CELECOXIB
     Dates: start: 201904
  5. BISOPROLOL [Concomitant]
     Active Substance: BISOPROLOL
     Dates: start: 1985
  6. VIGANTOLETTEN [Concomitant]
     Active Substance: CHOLECALCIFEROL
     Dates: start: 20191216
  7. RAMIPRIL. [Concomitant]
     Active Substance: RAMIPRIL
     Dates: start: 1985
  8. PANTOPRAZOLE [Concomitant]
     Active Substance: PANTOPRAZOLE
     Dates: start: 2014
  9. TORASEMIDE [Concomitant]
     Active Substance: TORSEMIDE
     Dates: start: 1985
  10. UPADACITINIB [Suspect]
     Active Substance: UPADACITINIB
     Indication: RHEUMATOID ARTHRITIS
     Route: 065
  11. JODID [Concomitant]
     Active Substance: IODINE
     Dates: start: 1970
  12. FOLIC ACID. [Concomitant]
     Active Substance: FOLIC ACID
     Dates: start: 2014

REACTIONS (2)
  - Vulval cancer [Recovered/Resolved]
  - Infected lymphocele [Recovered/Resolved]

NARRATIVE: CASE EVENT DATE: 20200302
